FAERS Safety Report 7190636-X (Version None)
Quarter: 2010Q4

REPORT INFORMATION
  Report Type: 
  Country: None (occurrence: None)
  Receive Date: 20101206
  Receipt Date: 20101118
  Transmission Date: 20110411
  Serious: Yes (Hospitalization)
  Sender: FDA-Public Use
  Company Number: 2010SP045235

PATIENT
  Age: 37 Year
  Sex: Female

DRUGS (4)
  1. CYCLEANE 30 (DESOGESTREL/ETHINYLESTRADIOL /00570801/) [Suspect]
     Indication: ORAL CONTRACEPTION
     Dosage: 1 DF; QD; PO
     Route: 048
     Dates: end: 20091014
  2. CELESTONE [Suspect]
     Indication: DYSPNOEA
     Dosage: 2 DF; QD;
     Dates: start: 20091009, end: 20091014
  3. GAVISCON [Suspect]
     Indication: PRODUCT USED FOR UNKNOWN INDICATION
     Dosage: ; PO
     Route: 048
     Dates: start: 20091001, end: 20091014
  4. FORMOAIR (FORMOTEROL) [Suspect]
     Indication: DYSPNOEA
     Dosage: 2 DF; QD; RESP
     Route: 055
     Dates: start: 20091009, end: 20091014

REACTIONS (7)
  - ALTERED STATE OF CONSCIOUSNESS [None]
  - DEEP VEIN THROMBOSIS [None]
  - HEART SOUNDS ABNORMAL [None]
  - INSOMNIA [None]
  - PERTUSSIS [None]
  - PULMONARY EMBOLISM [None]
  - PULMONARY INFARCTION [None]
